FAERS Safety Report 4299005-3 (Version None)
Quarter: 2004Q1

REPORT INFORMATION
  Report Type: 
  Country: None (occurrence: None)
  Receive Date: 20040217
  Receipt Date: 20040203
  Transmission Date: 20041129
  Serious: Yes (Other)
  Sender: FDA-Public Use
  Company Number: TOS-000607

PATIENT
  Age: 31 Year
  Sex: Female
  Weight: 60.3 kg

DRUGS (4)
  1. TOSITUMOMAB, IODINE I 131 TOSITUMOMAB [Suspect]
     Indication: NON-HODGKIN'S LYMPHOMA
     Dosage: SEE IMAGE
     Route: 042
     Dates: start: 20000524, end: 20000524
  2. TOSITUMOMAB, IODINE I 131 TOSITUMOMAB [Suspect]
     Indication: NON-HODGKIN'S LYMPHOMA
     Dosage: SEE IMAGE
     Route: 042
     Dates: start: 20000524, end: 20000524
  3. TOSITUMOMAB, IODINE I 131 TOSITUMOMAB [Suspect]
     Indication: NON-HODGKIN'S LYMPHOMA
     Dosage: SEE IMAGE
     Route: 042
     Dates: start: 20000531, end: 20000531
  4. TOSITUMOMAB, IODINE I 131 TOSITUMOMAB [Suspect]
     Indication: NON-HODGKIN'S LYMPHOMA
     Dosage: SEE IMAGE
     Route: 042
     Dates: start: 20000531, end: 20000531

REACTIONS (16)
  - AMNESIA [None]
  - ARTHROPOD BITE [None]
  - ASTHENIA [None]
  - COMPUTERISED TOMOGRAM ABNORMAL [None]
  - DIFFUSE LARGE B-CELL LYMPHOMA [None]
  - EAR PAIN [None]
  - ENCEPHALITIS HERPES [None]
  - FATIGUE [None]
  - HEPATITIS B ANTIBODY POSITIVE [None]
  - LOOSE STOOLS [None]
  - MALIGNANT NEOPLASM PROGRESSION [None]
  - MYELODYSPLASTIC SYNDROME [None]
  - NASOPHARYNGITIS [None]
  - PLEURAL DISORDER [None]
  - STEM CELL TRANSPLANT [None]
  - UPPER RESPIRATORY TRACT INFECTION [None]
